FAERS Safety Report 19446787 (Version 1)
Quarter: 2021Q2

REPORT INFORMATION
  Report Type: Spontaneous
  Country: US (occurrence: US)
  Receive Date: 20210620
  Receipt Date: 20210620
  Transmission Date: 20210717
  Serious: Yes (Hospitalization)
  Sender: FDA-Public Use
  Company Number: None

PATIENT
  Age: 70 Year
  Sex: Female
  Weight: 47.25 kg

DRUGS (1)
  1. AMOXICILLIN?CLAVULANATE POTASSIUM [Suspect]
     Active Substance: AMOXICILLIN\CLAVULANATE POTASSIUM
     Indication: DIVERTICULITIS
     Dosage: ?          QUANTITY:1 TABLET(S);?
     Route: 048
     Dates: start: 20210607, end: 20210616

REACTIONS (6)
  - Fluid intake reduced [None]
  - Dysphagia [None]
  - Hydronephrosis [None]
  - Pancreatitis [None]
  - Malaise [None]
  - Abdominal distension [None]

NARRATIVE: CASE EVENT DATE: 20210616
